FAERS Safety Report 22320302 (Version 1)
Quarter: 2023Q2

REPORT INFORMATION
  Report Type: Spontaneous
  Country: FR (occurrence: None)
  Receive Date: 20230515
  Receipt Date: 20230515
  Transmission Date: 20230721
  Serious: Yes (Other)
  Sender: FDA-Public Use
  Company Number: FR-ROCHE-3349409

PATIENT

DRUGS (1)
  1. ESBRIET [Suspect]
     Active Substance: PIRFENIDONE
     Indication: Pulmonary fibrosis
     Dosage: GEL 252
     Route: 048

REACTIONS (3)
  - Pulmonary arterial hypertension [Unknown]
  - Blood pressure increased [Unknown]
  - Tachycardia [Unknown]
